FAERS Safety Report 7901512-6 (Version None)
Quarter: 2011Q4

REPORT INFORMATION
  Report Type: 
  Country: None (occurrence: None)
  Receive Date: 20111108
  Receipt Date: 20111101
  Transmission Date: 20120403
  Serious: Yes (Life-Threatening, Other)
  Sender: FDA-Public Use
  Company Number: US-BAYER-2011-035541

PATIENT
  Age: 47 Year
  Sex: Female

DRUGS (4)
  1. YAZ [Suspect]
     Indication: MENSTRUATION IRREGULAR
     Dosage: UNK
     Dates: start: 20090401, end: 20090601
  2. LEVOXYL [Concomitant]
     Route: 048
  3. YAZ [Suspect]
     Indication: UNEVALUABLE EVENT
  4. DOSTINEX [Concomitant]

REACTIONS (4)
  - THROMBOSIS [None]
  - INJURY [None]
  - PERIPHERAL EMBOLISM [None]
  - PAIN [None]
